FAERS Safety Report 10784989 (Version 1)
Quarter: 2015Q1

REPORT INFORMATION
  Report Type: Spontaneous
  Country: US (occurrence: None)
  Receive Date: 20150209
  Receipt Date: 20150209
  Transmission Date: 20150721
  Serious: Yes (Death)
  Sender: FDA-Public Use
  Company Number: 2733296

PATIENT
  Age: 7 Year
  Sex: Male

DRUGS (5)
  1. CEFTRIAXONE SODIUM. [Suspect]
     Active Substance: CEFTRIAXONE SODIUM
     Indication: BACTERAEMIA
  2. MONTELUKAST [Concomitant]
     Active Substance: MONTELUKAST SODIUM
  3. ONDANSETRON [Concomitant]
     Active Substance: ONDANSETRON
  4. FENRETINIDE [Suspect]
     Active Substance: FENRETINIDE
     Indication: NEUROBLASTOMA
     Route: 041
     Dates: start: 201002
  5. ACETAMINOPHEN. [Suspect]
     Active Substance: ACETAMINOPHEN
     Indication: PYREXIA
     Dosage: 1 HOUR
     Route: 042

REACTIONS (24)
  - Pyrexia [None]
  - Dehydration [None]
  - Circulatory collapse [None]
  - Haemorrhage [None]
  - Cholelithiasis [None]
  - Pleural effusion [None]
  - Hepatocellular injury [None]
  - Cholestasis [None]
  - Hepatotoxicity [None]
  - Acute hepatic failure [None]
  - Cardiotoxicity [None]
  - Hypotension [None]
  - Atelectasis [None]
  - Metabolic acidosis [None]
  - Benign intracranial hypertension [None]
  - Hypophagia [None]
  - Urine output decreased [None]
  - Hepatomegaly [None]
  - Generalised oedema [None]
  - Viral rash [None]
  - Constipation [None]
  - Drug interaction [None]
  - Drug eruption [None]
  - Nephropathy toxic [None]
